FAERS Safety Report 25347365 (Version 1)
Quarter: 2025Q2

REPORT INFORMATION
  Report Type: Spontaneous
  Country: CA (occurrence: CA)
  Receive Date: 20250522
  Receipt Date: 20250522
  Transmission Date: 20250716
  Serious: Yes (Hospitalization)
  Sender: ANI
  Company Number: CA-ANIPHARMA-2025-CA-001681

PATIENT
  Age: 76 Year
  Sex: Male

DRUGS (11)
  1. CANDESARTAN CILEXETIL [Suspect]
     Active Substance: CANDESARTAN CILEXETIL
     Indication: Product used for unknown indication
  2. RIVASTIGMINE [Suspect]
     Active Substance: RIVASTIGMINE
  3. TRAZODONE [Suspect]
     Active Substance: TRAZODONE HYDROCHLORIDE
  4. QUETIAPINE FUMARATE [Suspect]
     Active Substance: QUETIAPINE FUMARATE
  5. CITALOPRAM [Suspect]
     Active Substance: CITALOPRAM
  6. CLONAZEPAM [Suspect]
     Active Substance: CLONAZEPAM
  7. CLOZAPINE [Suspect]
     Active Substance: CLOZAPINE
  8. LORAZEPAM [Suspect]
     Active Substance: LORAZEPAM
  9. LOXAPINE [Suspect]
     Active Substance: LOXAPINE
  10. OLANZAPINE [Suspect]
     Active Substance: OLANZAPINE
  11. RISPERIDONE [Suspect]
     Active Substance: RISPERIDONE

REACTIONS (8)
  - Cogwheel rigidity [Unknown]
  - Eyelid function disorder [Unknown]
  - Fall [Unknown]
  - Gait disturbance [Unknown]
  - Off label use [Unknown]
  - Orthostatic hypotension [Unknown]
  - Sedation [Unknown]
  - Tremor [Unknown]
